FAERS Safety Report 19051297 (Version 1)
Quarter: 2021Q1

REPORT INFORMATION
  Report Type: Spontaneous
  Country: US (occurrence: US)
  Receive Date: 20210324
  Receipt Date: 20210324
  Transmission Date: 20210420
  Serious: Yes (Hospitalization)
  Sender: FDA-Public Use
  Company Number: None

PATIENT
  Age: 68 Year
  Sex: Female
  Weight: 75.1 kg

DRUGS (10)
  1. LASIX 80 MG [Concomitant]
  2. JARDIANCE [Concomitant]
     Active Substance: EMPAGLIFLOZIN
  3. ASPIRIN 325MG [Concomitant]
     Active Substance: ASPIRIN
  4. POTASSIUM CHLORIDE ER 20 MEQ [Concomitant]
  5. METFORMIN HCL [Suspect]
     Active Substance: METFORMIN HYDROCHLORIDE
     Indication: THERAPY INTERRUPTED
     Route: 048
  6. GLUCOTROL XL 10 24HR [Concomitant]
  7. LIPITOR 80MG [Concomitant]
  8. METFORMIN HCL [Suspect]
     Active Substance: METFORMIN HYDROCHLORIDE
     Indication: HOSPITALISATION
     Route: 048
  9. LISINOPRIL. [Concomitant]
     Active Substance: LISINOPRIL
  10. LOPRESSOR 50MG [Concomitant]

REACTIONS (8)
  - Vomiting [None]
  - Diarrhoea [None]
  - Toxicity to various agents [None]
  - Nausea [None]
  - Metabolic acidosis [None]
  - Renal failure [None]
  - Hypovolaemic shock [None]
  - Blood lactic acid increased [None]

NARRATIVE: CASE EVENT DATE: 20210323
